FAERS Safety Report 17254513 (Version 4)
Quarter: 2020Q1

REPORT INFORMATION
  Report Type: Report from Study
  Country: US (occurrence: US)
  Receive Date: 20200109
  Receipt Date: 20200331
  Transmission Date: 20200409
  Serious: No
  Sender: FDA-Public Use
  Company Number: NVSC2020US002968

PATIENT
  Age: 88 Year
  Sex: Female

DRUGS (3)
  1. BEOVU [Suspect]
     Active Substance: BROLUCIZUMAB-DBLL
     Route: 047
  2. BEOVU [Suspect]
     Active Substance: BROLUCIZUMAB-DBLL
     Route: 047
     Dates: start: 20200106
  3. BEOVU [Suspect]
     Active Substance: BROLUCIZUMAB-DBLL
     Route: 047
     Dates: start: 20200105

REACTIONS (5)
  - Lacrimation increased [Unknown]
  - Vitreous floaters [Unknown]
  - Blood urine present [Recovered/Resolved]
  - Feeling abnormal [Unknown]
  - Alopecia [Unknown]

NARRATIVE: CASE EVENT DATE: 20200107
